FAERS Safety Report 4848689-7 (Version None)
Quarter: 2005Q4

REPORT INFORMATION
  Report Type: 
  Country: None (occurrence: None)
  Receive Date: 20051206
  Receipt Date: 20051122
  Transmission Date: 20060501
  Serious: Yes (Hospitalization, Other)
  Sender: FDA-Public Use
  Company Number: FR200511002318

PATIENT
  Age: 64 Year
  Sex: Male
  Weight: 65 kg

DRUGS (3)
  1. ALIMTA [Suspect]
     Indication: PLEURAL MESOTHELIOMA MALIGNANT
     Dosage: 500 MG/M2, OTHER, INTRAVENOUS
     Route: 042
     Dates: start: 20050308, end: 20050308
  2. FOLIC ACID [Concomitant]
  3. DEXAMETHASONE [Concomitant]

REACTIONS (7)
  - CONDITION AGGRAVATED [None]
  - NAUSEA [None]
  - OEDEMA [None]
  - PROSTATE CANCER [None]
  - PRURITUS [None]
  - RENAL FAILURE [None]
  - URTICARIA [None]
